FAERS Safety Report 19883450 (Version 1)
Quarter: 2021Q3

REPORT INFORMATION
  Report Type: Report from Study
  Country: None (occurrence: US)
  Receive Date: 20210926
  Receipt Date: 20210926
  Transmission Date: 20211014
  Serious: Yes (Other)
  Sender: FDA-Public Use
  Company Number: US-ABBVIE-21K-163-4091881-00

PATIENT
  Sex: Female

DRUGS (2)
  1. DUOPA [Suspect]
     Active Substance: CARBIDOPA\LEVODOPA
  2. DUOPA [Suspect]
     Active Substance: CARBIDOPA\LEVODOPA
     Indication: PARKINSON^S DISEASE
     Dosage: 4.63?20MG?MORNING DOSE: 11ML, CONTINUOUS DOSE: 2.5ML, EXTRA DOSE: 1.5ML?1 CASSETTE
     Route: 050
     Dates: start: 20210726, end: 2021

REACTIONS (2)
  - Drug dependence [Unknown]
  - Hospice care [Unknown]

NARRATIVE: CASE EVENT DATE: 2021
